FAERS Safety Report 6293844-5 (Version None)
Quarter: 2009Q3

REPORT INFORMATION
  Report Type: 
  Country: None (occurrence: None)
  Receive Date: 20090803
  Receipt Date: 20090723
  Transmission Date: 20100115
  Serious: Yes (Hospitalization)
  Sender: FDA-Public Use
  Company Number: US-ELI_LILLY_AND_COMPANY-US200907003108

PATIENT
  Sex: Female

DRUGS (4)
  1. FORTEO [Suspect]
     Indication: OSTEOPOROSIS
     Dosage: 20 UG, DAILY (1/D)
  2. MACROBID [Concomitant]
     Indication: URINARY TRACT INFECTION
     Dates: end: 20090710
  3. FLEXERIL [Concomitant]
     Dates: end: 20090710
  4. METHOTREXATE [Concomitant]

REACTIONS (6)
  - ASTHENIA [None]
  - CHILLS [None]
  - COUGH [None]
  - DECREASED APPETITE [None]
  - HOSPITALISATION [None]
  - PYREXIA [None]
